FAERS Safety Report 14678182 (Version 2)
Quarter: 2018Q2

REPORT INFORMATION
  Report Type: Spontaneous
  Country: US (occurrence: US)
  Receive Date: 20180326
  Receipt Date: 20180420
  Transmission Date: 20180711
  Serious: No
  Sender: FDA-Public Use
  Company Number: US-ASTRAZENECA-2018SE34959

PATIENT
  Sex: Female
  Weight: 77.1 kg

DRUGS (2)
  1. BYDUREON [Suspect]
     Active Substance: EXENATIDE
     Indication: TYPE 2 DIABETES MELLITUS
     Route: 058
     Dates: start: 2017
  2. BYDUREON BCISE [Suspect]
     Active Substance: EXENATIDE
     Indication: TYPE 2 DIABETES MELLITUS
     Route: 058
     Dates: start: 2017

REACTIONS (12)
  - Pain in extremity [Unknown]
  - Device malfunction [Unknown]
  - Abdominal pain upper [Unknown]
  - Injection site mass [Unknown]
  - Injection site bruising [Unknown]
  - Glycosylated haemoglobin increased [Unknown]
  - Injection site erythema [Unknown]
  - Circumstance or information capable of leading to medication error [Unknown]
  - Neck pain [Unknown]
  - Device dispensing error [Unknown]
  - Arthralgia [Unknown]
  - Injection site extravasation [Unknown]
